FAERS Safety Report 7449010-0 (Version None)
Quarter: 2011Q2

REPORT INFORMATION
  Report Type: 
  Country: None (occurrence: None)
  Receive Date: 20110429
  Receipt Date: 20100302
  Transmission Date: 20111010
  Serious: Yes (Death, Other)
  Sender: FDA-Public Use
  Company Number: DE-GENENTECH-317698

PATIENT
  Age: 81 Year

DRUGS (1)
  1. LUCENTIS [Suspect]
     Indication: MACULAR DEGENERATION
     Dosage: UNK
     Route: 031
     Dates: start: 20091222

REACTIONS (5)
  - NASOPHARYNGITIS [None]
  - PNEUMONIA [None]
  - BLOOD COUNT ABNORMAL [None]
  - BRONCHITIS [None]
  - DEATH [None]
